FAERS Safety Report 4392615-4 (Version None)
Quarter: 2004Q3

REPORT INFORMATION
  Report Type: 
  Country: None (occurrence: None)
  Receive Date: 20040702
  Receipt Date: 20040618
  Transmission Date: 20050211
  Serious: Yes (Life-Threatening)
  Sender: FDA-Public Use
  Company Number: 2004-00354FE

PATIENT
  Age: 19 Year
  Sex: Female

DRUGS (2)
  1. PENTASA [Suspect]
     Indication: CROHN'S DISEASE
     Dosage: 2250 MG
     Route: 048
     Dates: start: 20040507, end: 20040514
  2. PREDNISOLONE [Concomitant]

REACTIONS (8)
  - COMA [None]
  - DIFFICULTY IN WALKING [None]
  - DIZZINESS [None]
  - DYSPNOEA [None]
  - HYPOAESTHESIA [None]
  - LEUKOENCEPHALOPATHY [None]
  - LIVER DISORDER [None]
  - MUSCULAR WEAKNESS [None]
